FAERS Safety Report 16947551 (Version 2)
Quarter: 2019Q4

REPORT INFORMATION
  Report Type: Spontaneous
  Country: US (occurrence: US)
  Receive Date: 20191022
  Receipt Date: 20191031
  Transmission Date: 20200122
  Serious: Yes (Life-Threatening, Hospitalization)
  Sender: FDA-Public Use
  Company Number: US-TEVA-2019-US-1125536

PATIENT
  Age: 82 Year
  Sex: Female

DRUGS (1)
  1. PROPYLTHIOURACIL. [Suspect]
     Active Substance: PROPYLTHIOURACIL
     Indication: HYPERTHYROIDISM
     Route: 065

REACTIONS (7)
  - Granulomatosis with polyangiitis [Unknown]
  - Anaemia [Unknown]
  - Pulmonary renal syndrome [Unknown]
  - Renal impairment [Unknown]
  - Vasculitis [Unknown]
  - Respiratory failure [Unknown]
  - Haemoptysis [Unknown]
